FAERS Safety Report 7811709 (Version 13)
Quarter: 2013Q3

REPORT INFORMATION
  Report Type: Report from Study
  Country: DE (occurrence: DE)
  Receive Date: 20110214
  Receipt Date: 20130805
  Transmission Date: 20140515
  Serious: Yes (Death, Hospitalization, Other)
  Sender: FDA-Public Use
  Company Number: PHHO2011DE02336

PATIENT
  Age: 55 Year
  Sex: Female
  Weight: 60 kg

DRUGS (9)
  1. SOM230 [Suspect]
     Indication: NEUROENDOCRINE TUMOUR
     Dosage: 60 MG, UNK
     Route: 030
     Dates: start: 20100615, end: 20110126
  2. CISPLATIN [Suspect]
     Indication: MALIGNANT NEOPLASM PROGRESSION
     Dosage: UNK
     Dates: start: 20110323, end: 20110325
  3. ETOPOSIDE [Suspect]
     Indication: MALIGNANT NEOPLASM PROGRESSION
     Dosage: UNK
     Dates: start: 20110325, end: 20110325
  4. MORPHINE [Suspect]
  5. VOLTAREN [Suspect]
     Dosage: UNK
     Dates: start: 20110201
  6. HYDROCORTISON [Suspect]
     Dosage: 3 MG, UNK
     Route: 048
     Dates: start: 20081215
  7. ZOLEDRONATE [Concomitant]
     Indication: METASTASES TO BONE
     Dosage: UNK
  8. ASTONIN-H [Concomitant]
  9. TRAMADOL ^GEA^ [Concomitant]

REACTIONS (13)
  - Malignant neoplasm progression [Fatal]
  - Thrombocytopenia [Fatal]
  - Metastasis [Fatal]
  - Horner^s syndrome [Fatal]
  - Back pain [Fatal]
  - Hyponatraemia [Fatal]
  - Disturbance in attention [Fatal]
  - Nausea [Fatal]
  - Vomiting [Fatal]
  - Neutropenic sepsis [Fatal]
  - Pancytopenia [Fatal]
  - Adrenocortical insufficiency acute [Recovered/Resolved]
  - Electrolyte imbalance [Recovered/Resolved]
